FAERS Safety Report 13762777 (Version 2)
Quarter: 2017Q3

REPORT INFORMATION
  Report Type: Spontaneous
  Country: US (occurrence: US)
  Receive Date: 20170718
  Receipt Date: 20170831
  Transmission Date: 20171127
  Serious: Yes (Other)
  Sender: FDA-Public Use
  Company Number: US-APOPHARMA USA, INC.-2017AP014571

PATIENT

DRUGS (11)
  1. HYDROXYUREA. [Concomitant]
     Active Substance: HYDROXYUREA
     Indication: CORD BLOOD TRANSPLANT THERAPY
     Dosage: 30 MG/KG, UNK
     Route: 048
  2. ALKERAN [Suspect]
     Active Substance: MELPHALAN
     Indication: CORD BLOOD TRANSPLANT THERAPY
     Dosage: 140 MG/M2, SINGLE
     Route: 042
  3. TACROLIMUS. [Concomitant]
     Active Substance: TACROLIMUS
     Indication: PROPHYLAXIS AGAINST GRAFT VERSUS HOST DISEASE
     Dosage: UNK, UNKNOWN
     Route: 065
  4. ALEMTUZUMAB [Concomitant]
     Active Substance: ALEMTUZUMAB
     Dosage: 10 MG, QD
     Route: 050
  5. ALEMTUZUMAB [Concomitant]
     Active Substance: ALEMTUZUMAB
     Dosage: 20 MG, QD
     Route: 050
  6. ALEMTUZUMAB [Concomitant]
     Active Substance: ALEMTUZUMAB
     Dosage: 15 MG, QD
     Route: 050
  7. CYCLOSPORINE. [Concomitant]
     Active Substance: CYCLOSPORINE
     Indication: PROPHYLAXIS AGAINST GRAFT VERSUS HOST DISEASE
     Dosage: UNK, UNKNOWN
     Route: 065
  8. MYCOPHENOLATE MOFETIL. [Concomitant]
     Active Substance: MYCOPHENOLATE MOFETIL
     Indication: PROPHYLAXIS AGAINST GRAFT VERSUS HOST DISEASE
     Dosage: 15 MG/KG, TID
     Route: 065
  9. FLUDARABINE [Concomitant]
     Active Substance: FLUDARABINE PHOSPHATE
     Indication: CORD BLOOD TRANSPLANT THERAPY
     Dosage: 30 MG/M2, QD
     Route: 042
  10. THIOTEPA. [Concomitant]
     Active Substance: THIOTEPA
     Indication: CORD BLOOD TRANSPLANT THERAPY
     Dosage: 4 MG/KG, BID
     Route: 042
  11. ALEMTUZUMAB [Concomitant]
     Active Substance: ALEMTUZUMAB
     Indication: CORD BLOOD TRANSPLANT THERAPY
     Dosage: 3 MG, SINGLE
     Route: 050

REACTIONS (9)
  - Pneumonia klebsiella [Unknown]
  - Human herpesvirus 6 infection [Recovered/Resolved]
  - Acute graft versus host disease in skin [Unknown]
  - Alpha haemolytic streptococcal infection [Unknown]
  - Micrococcus infection [Unknown]
  - Adenovirus infection [Recovered/Resolved]
  - Chronic graft versus host disease [Unknown]
  - Inappropriate antidiuretic hormone secretion [Unknown]
  - Lung disorder [Unknown]
